FAERS Safety Report 11724162 (Version 4)
Quarter: 2016Q1

REPORT INFORMATION
  Report Type: Spontaneous
  Country: US (occurrence: US)
  Receive Date: 20151111
  Receipt Date: 20160105
  Transmission Date: 20160525
  Serious: No
  Sender: FDA-Public Use
  Company Number: US-009507513-1510USA011351

PATIENT
  Age: 35 Year
  Sex: Female
  Weight: 82.99 kg

DRUGS (2)
  1. VICODIN [Suspect]
     Active Substance: ACETAMINOPHEN\HYDROCODONE BITARTRATE
     Indication: PRODUCT USED FOR UNKNOWN INDICATION
     Route: 065
  2. NEXPLANON [Suspect]
     Active Substance: ETONOGESTREL
     Indication: CONTRACEPTION
     Dosage: 68 MG, UNK
     Route: 059
     Dates: start: 20130722, end: 20151014

REACTIONS (13)
  - Hypoaesthesia [Recovered/Resolved]
  - Pain in extremity [Recovered/Resolved]
  - Pain in extremity [Unknown]
  - Intervertebral disc degeneration [Unknown]
  - Dyspnoea exertional [Unknown]
  - Complication of device removal [Recovered/Resolved]
  - Asthma [Unknown]
  - Pain in extremity [Unknown]
  - Device difficult to use [Recovered/Resolved]
  - Implant site pain [Recovered/Resolved]
  - Implant site hypoaesthesia [Recovered/Resolved]
  - Brachial plexopathy [Unknown]
  - Palpitations [Unknown]

NARRATIVE: CASE EVENT DATE: 201308
